FAERS Safety Report 14863436 (Version 1)
Quarter: 2018Q2

REPORT INFORMATION
  Report Type: Spontaneous
  Country: US (occurrence: US)
  Receive Date: 20180508
  Receipt Date: 20180508
  Transmission Date: 20180711
  Serious: No
  Sender: FDA-Public Use
  Company Number: US-ALKERMES INC.-ALK-2017-002792

PATIENT
  Age: 29 Year
  Sex: Male
  Weight: 81.63 kg

DRUGS (1)
  1. VIVITROL [Suspect]
     Active Substance: NALTREXONE
     Indication: DRUG DEPENDENCE
     Dosage: 380 MG, QMO
     Route: 030
     Dates: start: 20170408

REACTIONS (10)
  - Asthenia [Unknown]
  - Injection site pain [Not Recovered/Not Resolved]
  - Drug dependence [Not Recovered/Not Resolved]
  - Injection site reaction [Unknown]
  - Injection site mass [Unknown]
  - Wrong technique in product usage process [Unknown]
  - Insomnia [Unknown]
  - Injection site induration [Unknown]
  - Lack of administration site rotation [Not Recovered/Not Resolved]
  - Injection site swelling [Unknown]

NARRATIVE: CASE EVENT DATE: 2017
